FAERS Safety Report 5234087-3 (Version None)
Quarter: 2007Q1

REPORT INFORMATION
  Report Type: 
  Country: None (occurrence: None)
  Receive Date: 20070208
  Receipt Date: 20070130
  Transmission Date: 20070707
  Serious: Yes (Life-Threatening, Hospitalization)
  Sender: FDA-Public Use
  Company Number: ES-PFIZER INC-2007007644

PATIENT
  Age: 88 Year
  Sex: Female

DRUGS (3)
  1. ALDACTONE [Suspect]
  2. TAVANIC [Suspect]
     Indication: UPPER RESPIRATORY TRACT INFECTION
     Route: 048
     Dates: start: 20061215, end: 20061220
  3. ENALAPRIL MALEATE [Suspect]

REACTIONS (3)
  - BLOOD UREA INCREASED [None]
  - DIARRHOEA [None]
  - HYPERKALAEMIA [None]
